FAERS Safety Report 12751293 (Version 1)
Quarter: 2016Q3

REPORT INFORMATION
  Report Type: Spontaneous
  Country: US (occurrence: US)
  Receive Date: 20160915
  Receipt Date: 20160915
  Transmission Date: 20161109
  Serious: No
  Sender: FDA-Public Use
  Company Number: US-GLAXOSMITHKLINE-US2016134772

PATIENT
  Sex: Female

DRUGS (4)
  1. CALCIUM [Concomitant]
     Active Substance: CALCIUM
  2. ADVAIR DISKUS [Suspect]
     Active Substance: FLUTICASONE PROPIONATE\SALMETEROL XINAFOATE
     Indication: ASTHMA
     Dosage: 500/50 MCG 1 PUFF, QD
     Route: 055
     Dates: start: 20160907, end: 20160912
  3. PREMARIN [Concomitant]
     Active Substance: ESTROGENS, CONJUGATED
  4. FLAXSEED [Concomitant]
     Active Substance: FLAX SEED

REACTIONS (3)
  - Rash [Not Recovered/Not Resolved]
  - Expired product administered [Recovered/Resolved]
  - Inappropriate schedule of drug administration [Recovered/Resolved]
